FAERS Safety Report 6309614-5 (Version None)
Quarter: 2009Q3

REPORT INFORMATION
  Report Type: 
  Country: None (occurrence: None)
  Receive Date: 20090814
  Receipt Date: 20090803
  Transmission Date: 20100115
  Serious: Yes (Death, Disabling)
  Sender: FDA-Public Use
  Company Number: IT-JNJFOC-20090709682

PATIENT
  Sex: Male

DRUGS (4)
  1. TRAMADOL HCL [Suspect]
     Indication: PAIN
     Route: 048
  2. AXITINIB [Suspect]
     Indication: PANCREATIC CARCINOMA METASTATIC
     Route: 048
  3. GEMCITABINE [Suspect]
     Indication: PANCREATIC CARCINOMA METASTATIC
     Route: 042
  4. DURAGESIC-100 [Suspect]
     Indication: PAIN
     Route: 058

REACTIONS (5)
  - COGNITIVE DISORDER [None]
  - CONFUSIONAL STATE [None]
  - DEPRESSION [None]
  - DISEASE PROGRESSION [None]
  - PSYCHOMOTOR SKILLS IMPAIRED [None]
